FAERS Safety Report 4552712-7 (Version None)
Quarter: 2005Q1

REPORT INFORMATION
  Report Type: 
  Country: None (occurrence: None)
  Receive Date: 20050112
  Receipt Date: 20050112
  Transmission Date: 20050727
  Serious: Yes (Hospitalization)
  Sender: FDA-Public Use
  Company Number: None

PATIENT
  Age: 78 Year
  Sex: Male
  Weight: 80.9 kg

DRUGS (14)
  1. TAXOTERE [Suspect]
     Indication: NON-SMALL CELL LUNG CANCER
     Dosage: 147 MG  EVERY 21 DAYS INTRAVENOUS
     Route: 042
     Dates: start: 20041111, end: 20041213
  2. IRESSA [Suspect]
     Indication: NON-SMALL CELL LUNG CANCER
     Dosage: 200MG  DAILY ORAL
     Route: 048
     Dates: start: 20041111, end: 20041228
  3. LASIX [Concomitant]
  4. DILAUDID [Concomitant]
  5. COMBIVENT [Concomitant]
  6. HYDROCHLOROTHIAZIDE [Concomitant]
  7. XALATAN [Concomitant]
  8. AVANDIA [Concomitant]
  9. LISINOPRIL [Concomitant]
  10. NORVASC [Concomitant]
  11. PRANDIN [Concomitant]
  12. ADVICOR [Concomitant]
  13. XANAX [Concomitant]
  14. ADVAIR DISKUS 100/50 [Concomitant]

REACTIONS (3)
  - ASTHENIA [None]
  - BRONCHOPNEUMONIA [None]
  - CHRONIC OBSTRUCTIVE AIRWAYS DISEASE EXACERBATED [None]
